FAERS Safety Report 6754446-7 (Version None)
Quarter: 2010Q2

REPORT INFORMATION
  Report Type: 
  Country: None (occurrence: None)
  Receive Date: 20100603
  Receipt Date: 20100521
  Transmission Date: 20101027
  Serious: Yes (Other)
  Sender: FDA-Public Use
  Company Number: PHHY2010JP34111

PATIENT
  Sex: Female

DRUGS (1)
  1. NEORAL [Suspect]
     Indication: APLASTIC ANAEMIA
     Dosage: 25 MG/DAY
     Route: 048
     Dates: start: 20020610

REACTIONS (1)
  - TUBULOINTERSTITIAL NEPHRITIS [None]
